FAERS Safety Report 13143451 (Version 3)
Quarter: 2017Q1

REPORT INFORMATION
  Report Type: Spontaneous
  Country: BR (occurrence: BR)
  Receive Date: 20170124
  Receipt Date: 20170310
  Transmission Date: 20170428
  Serious: Yes (Hospitalization, Other)
  Sender: FDA-Public Use
  Company Number: BR-ABBVIE-17P-020-1850835-00

PATIENT
  Sex: Female
  Weight: 40 kg

DRUGS (6)
  1. PHENYTOIN. [Concomitant]
     Active Substance: PHENYTOIN
     Indication: EPILEPSY
  2. DEPAKENE [Suspect]
     Active Substance: VALPROIC ACID
     Indication: HYDROCEPHALUS
     Dosage: MORNING/ AFTERNOON / NIGHT
     Route: 048
     Dates: start: 201208, end: 2016
  3. CLONAZEPAM. [Concomitant]
     Active Substance: CLONAZEPAM
     Indication: HYDROCEPHALUS
     Dosage: MORNING/ AFTERNOON/ NIGHT
     Route: 048
     Dates: end: 20161024
  4. DEPAKENE [Suspect]
     Active Substance: VALPROIC ACID
     Indication: SEIZURE
     Route: 048
     Dates: start: 20161026
  5. DEPAKENE [Suspect]
     Active Substance: VALPROIC ACID
     Indication: EPILEPSY
  6. PHENYTOIN. [Concomitant]
     Active Substance: PHENYTOIN
     Indication: HYDROCEPHALUS

REACTIONS (10)
  - Seizure [Recovered/Resolved]
  - Seizure [Recovered/Resolved]
  - Drug ineffective [Unknown]
  - Coma [Recovered/Resolved]
  - Coma [Recovered/Resolved]
  - Off label use [Unknown]
  - Product difficult to swallow [Unknown]
  - Dyspnoea [Unknown]
  - Off label use [Unknown]
  - Product use issue [Unknown]

NARRATIVE: CASE EVENT DATE: 2012
